FAERS Safety Report 5421296-3 (Version None)
Quarter: 2007Q3

REPORT INFORMATION
  Report Type: 
  Country: None (occurrence: None)
  Receive Date: 20070719
  Receipt Date: 20061121
  Transmission Date: 20080115
  Serious: Yes (Life-Threatening)
  Sender: FDA-Public Use
  Company Number: OMPQ-PR-0611S-1537

PATIENT
  Age: 29 Year
  Sex: Female

DRUGS (4)
  1. OMNIPAQUE 140 [Suspect]
     Indication: DRUG USE FOR UNKNOWN INDICATION
     Dosage: 150 ML, SINGLE DOSE, I.V.
     Route: 042
     Dates: start: 20061110, end: 20061110
  2. FAMOTIDINE [Concomitant]
  3. ETHINYL ESTRADIOL/NORETHINDRONE/FERROUS FUMARATE [Concomitant]
  4. VICODNE (HYDROCODONE ACETAMINPHEN) [Concomitant]

REACTIONS (1)
  - ANAPHYLACTOID SHOCK [None]
